FAERS Safety Report 15945621 (Version 3)
Quarter: 2019Q1

REPORT INFORMATION
  Report Type: Spontaneous
  Country: ES (occurrence: ES)
  Receive Date: 20190211
  Receipt Date: 20190219
  Transmission Date: 20190417
  Serious: Yes (Hospitalization)
  Sender: FDA-Public Use
  Company Number: ES-ACCORD-106604

PATIENT
  Age: 76 Year
  Sex: Female

DRUGS (2)
  1. TRAZODONE [Suspect]
     Active Substance: TRAZODONE HYDROCHLORIDE
     Indication: MAJOR DEPRESSION
     Dosage: ALSO TAKEN 100 MG FROM 2017 TO 13-JUN-2018
     Route: 048
     Dates: start: 20180429, end: 20180530
  2. LARGACTIL [Concomitant]
     Active Substance: CHLORPROMAZINE
     Indication: MAJOR DEPRESSION
     Route: 048
     Dates: start: 20180429

REACTIONS (1)
  - Hepatitis [Recovering/Resolving]

NARRATIVE: CASE EVENT DATE: 20180529
